FAERS Safety Report 26076063 (Version 1)
Quarter: 2025Q4

REPORT INFORMATION
  Report Type: Spontaneous
  Country: US (occurrence: US)
  Receive Date: 20251121
  Receipt Date: 20251121
  Transmission Date: 20260118
  Serious: Yes (Hospitalization, Other)
  Sender: REGENERON
  Company Number: US-REGENERON PHARMACEUTICALS, INC.-2025-182925

PATIENT
  Sex: Female

DRUGS (2)
  1. PRALUENT [Suspect]
     Active Substance: ALIROCUMAB
     Indication: Type IIa hyperlipidaemia
     Dosage: 150 MG, Q2W (TWICE A MONTH), STRENGTH:150MG/ML
     Route: 065
  2. CRESTOR [Concomitant]
     Active Substance: ROSUVASTATIN CALCIUM
     Indication: Product used for unknown indication
     Dosage: 10 MG

REACTIONS (6)
  - Coronary artery bypass [Unknown]
  - Cardiac operation [Unknown]
  - Myocardial infarction [Unknown]
  - Computerised tomogram heart abnormal [Unknown]
  - Catheterisation cardiac [Unknown]
  - Inflammation [Unknown]

NARRATIVE: CASE EVENT DATE: 20150101
